FAERS Safety Report 14949110 (Version 2)
Quarter: 2019Q2

REPORT INFORMATION
  Report Type: Spontaneous
  Country: BY (occurrence: BY)
  Receive Date: 20180529
  Receipt Date: 20190418
  Transmission Date: 20190711
  Serious: Yes (Hospitalization, Other)
  Sender: FDA-Public Use
  Company Number: BY-PFIZER INC-2018213843

PATIENT
  Age: 34 Year
  Sex: Female
  Weight: 52.29 kg

DRUGS (9)
  1. CLOFAZIMINE [Suspect]
     Active Substance: CLOFAZIMINE
     Dosage: UNK UNK, 1X/DAY [100]
     Route: 048
     Dates: start: 20170807
  2. DELAMANID [Suspect]
     Active Substance: DELAMANID
     Dosage: UNK UNK, 1X/DAY [200]
     Route: 048
     Dates: start: 20170807
  3. ZOPICLON [Concomitant]
     Active Substance: ZOPICLONE
     Dosage: UNK
     Dates: start: 20170807, end: 20180221
  4. CILASTATIN SODIUM W/IMIPENEM [Suspect]
     Active Substance: CILASTATIN SODIUM\IMIPENEM
     Dosage: UNK UNK, 1X/DAY [2000]
     Route: 042
     Dates: start: 20170807
  5. FLUCONAZOL [Concomitant]
     Active Substance: FLUCONAZOLE
     Dosage: UNK
     Dates: start: 20170920, end: 20180221
  6. COTRIMOXAZOLE [Suspect]
     Active Substance: SULFAMETHOXAZOLE\TRIMETHOPRIM
     Dosage: UNK
     Dates: start: 20170920, end: 20180221
  7. LINEZOLID. [Suspect]
     Active Substance: LINEZOLID
     Dosage: UNK UNK, 1X/DAY [600]
     Route: 048
     Dates: start: 20170807
  8. LEVOFLOXACIN. [Suspect]
     Active Substance: LEVOFLOXACIN
     Dosage: UNK UNK, 1X/DAY [750]
     Route: 048
     Dates: start: 20170807
  9. AMOXICILLIN CLAVULANIC ACID [Suspect]
     Active Substance: AMOXICILLIN\CLAVULANIC ACID
     Dosage: UNK UNK, 1X/DAY [2500]
     Route: 048
     Dates: start: 20170807

REACTIONS (1)
  - Gamma-glutamyltransferase increased [Not Recovered/Not Resolved]

NARRATIVE: CASE EVENT DATE: 20180306
